FAERS Safety Report 13547526 (Version 1)
Quarter: 2017Q2

REPORT INFORMATION
  Report Type: Spontaneous
  Country: US (occurrence: US)
  Receive Date: 20170515
  Receipt Date: 20170515
  Transmission Date: 20170830
  Serious: Yes (Other)
  Sender: FDA-Public Use
  Company Number: US-BIOMARINAP-US-2017-113946

PATIENT
  Age: 45 Year
  Sex: Female
  Weight: 38.2 kg

DRUGS (1)
  1. VIMIZIM [Suspect]
     Active Substance: ELOSULFASE ALFA
     Indication: PRODUCT USED FOR UNKNOWN INDICATION
     Dosage: 85 MG, QW
     Route: 042

REACTIONS (2)
  - Limb operation [Unknown]
  - Pain [Unknown]

NARRATIVE: CASE EVENT DATE: 20170428
